FAERS Safety Report 19714292 (Version 1)
Quarter: 2021Q3

REPORT INFORMATION
  Report Type: Spontaneous
  Country: CN (occurrence: CN)
  Receive Date: 20210818
  Receipt Date: 20210818
  Transmission Date: 20211014
  Serious: Yes (Other)
  Sender: FDA-Public Use
  Company Number: CN-009507513-2108CHN003110

PATIENT
  Age: 78 Year
  Sex: Female

DRUGS (1)
  1. TIENAM [Suspect]
     Active Substance: CILASTATIN SODIUM\IMIPENEM
     Indication: DIABETIC FOOT
     Dosage: 0.5 G, THREE TIMES PER DAY
     Route: 041
     Dates: start: 20210701, end: 20210727

REACTIONS (5)
  - Cough [Recovering/Resolving]
  - Wheezing [Unknown]
  - Epilepsy [Recovering/Resolving]
  - Product use in unapproved indication [Unknown]
  - Sputum retention [Recovering/Resolving]

NARRATIVE: CASE EVENT DATE: 20210701
